FAERS Safety Report 5803919-X (Version None)
Quarter: 2008Q3

REPORT INFORMATION
  Report Type: 
  Country: None (occurrence: None)
  Receive Date: 20080703
  Receipt Date: 20080620
  Transmission Date: 20090109
  Serious: No
  Sender: FDA-Public Use
  Company Number: 001379

PATIENT
  Age: 36 Year
  Sex: Male

DRUGS (6)
  1. PLETAL [Suspect]
     Indication: CEREBRAL INFARCTION
     Dosage: 100 MG, QD ORAL
     Route: 048
     Dates: start: 20080401, end: 20080523
  2. FAMOTIDINE [Suspect]
     Dosage: ORAL
     Route: 048
     Dates: end: 20080520
  3. GASMOTIN (MOSAPRIDE CITRATE) [Suspect]
     Dosage: 5 MG TID ORAL
     Route: 048
     Dates: start: 20080520, end: 20080523
  4. ALOSENN (ACHILLEA, RUBIA ROOT TINCTURE, SENNA FRUIT, SENNA LEAF, TARAX [Suspect]
     Dosage: 0.5 MG, QD; ORAL
     Route: 048
     Dates: end: 20080523
  5. MAGMITT (MAGNESIUM OXIDE) TABLET [Suspect]
     Dosage: 330 MG, TID; ORAL
     Route: 048
     Dates: end: 20080523
  6. GLUFAST (MITIGLINIDE CALCIUM HYDRATE) [Concomitant]

REACTIONS (3)
  - ALANINE AMINOTRANSFERASE INCREASED [None]
  - ASPARTATE AMINOTRANSFERASE INCREASED [None]
  - BLOOD ALKALINE PHOSPHATASE INCREASED [None]
